FAERS Safety Report 6135875-1 (Version None)
Quarter: 2009Q1

REPORT INFORMATION
  Report Type: 
  Country: None (occurrence: None)
  Receive Date: 20090327
  Receipt Date: 20090318
  Transmission Date: 20090719
  Serious: Yes (Death)
  Sender: FDA-Public Use
  Company Number: RU-MERCK-0903RUS00004

PATIENT
  Age: 81 Year
  Sex: Female

DRUGS (1)
  1. FOSAMAX PLUS D [Suspect]
     Route: 048
     Dates: start: 20080601, end: 20080801

REACTIONS (1)
  - ISCHAEMIC STROKE [None]
